FAERS Safety Report 15531543 (Version 3)
Quarter: 2019Q1

REPORT INFORMATION
  Report Type: Spontaneous
  Country: US (occurrence: US)
  Receive Date: 20181019
  Receipt Date: 20190214
  Transmission Date: 20190417
  Serious: No
  Sender: FDA-Public Use
  Company Number: US-ASTRAZENECA-2018SF23266

PATIENT
  Age: 23994 Day
  Sex: Female
  Weight: 90.3 kg

DRUGS (3)
  1. BYDUREON [Suspect]
     Active Substance: EXENATIDE
     Indication: TYPE 2 DIABETES MELLITUS
     Dosage: ONCE A WEEK
     Route: 058
     Dates: start: 201601, end: 201602
  2. METFORMIN [Concomitant]
     Active Substance: METFORMIN HYDROCHLORIDE
     Indication: TYPE 2 DIABETES MELLITUS
     Route: 048
  3. BYDUREON BCISE [Suspect]
     Active Substance: EXENATIDE
     Indication: TYPE 2 DIABETES MELLITUS
     Route: 058
     Dates: start: 20180920

REACTIONS (14)
  - Device issue [Unknown]
  - Injection site bruising [Unknown]
  - Intentional device misuse [Unknown]
  - Injection site erythema [Unknown]
  - Product use issue [Unknown]
  - Product administration error [Unknown]
  - Injection site pain [Unknown]
  - Nodule [Unknown]
  - Mechanical urticaria [Unknown]
  - Incorrect dose administered by device [Unknown]
  - Injection site nodule [Unknown]
  - Injection site mass [Unknown]
  - Injection site pruritus [Unknown]
  - Device leakage [Unknown]

NARRATIVE: CASE EVENT DATE: 20180927
